FAERS Safety Report 7464983-8 (Version None)
Quarter: 2011Q2

REPORT INFORMATION
  Report Type: 
  Country: None (occurrence: None)
  Receive Date: 20110505
  Receipt Date: 20110505
  Transmission Date: 20111010
  Serious: Yes (Other)
  Sender: FDA-Public Use
  Company Number: None

PATIENT
  Age: 73 Year
  Sex: Male
  Weight: 91.63 kg

DRUGS (4)
  1. GAMMAGARD [Suspect]
     Dosage: 40 GMS (400 MLS) DAILY X5 DAYS Q5 WK IV
     Route: 042
  2. SODIUM CHLORIDE 0.9% [Suspect]
     Dosage: 250ML Q 30-60 MIN IV AFTER EACH DOSE OF IVIG
     Route: 042
  3. HEPATIN LF [Concomitant]
  4. SODIUM CHLORIDE [Concomitant]

REACTIONS (6)
  - HEADACHE [None]
  - VISION BLURRED [None]
  - ABNORMAL SENSATION IN EYE [None]
  - OCULAR HYPERAEMIA [None]
  - INFUSION RELATED REACTION [None]
  - EYE PAIN [None]
